FAERS Safety Report 4753978-0 (Version None)
Quarter: 2005Q3

REPORT INFORMATION
  Report Type: 
  Country: None (occurrence: None)
  Receive Date: 20050826
  Receipt Date: 20050816
  Transmission Date: 20060218
  Serious: Yes (Death, Hospitalization, Other)
  Sender: FDA-Public Use
  Company Number: 2005116649

PATIENT
  Age: 74 Year
  Sex: Female
  Weight: 79.8331 kg

DRUGS (7)
  1. CELEBREX [Suspect]
     Indication: OSTEOARTHRITIS
     Dosage: 200 MG (200 MG, 1 IN 1 D), ORAL
     Route: 048
     Dates: start: 20000626, end: 20050801
  2. NEURONTIN [Suspect]
     Indication: ILL-DEFINED DISORDER
     Dosage: ORAL
     Route: 048
     Dates: end: 20050801
  3. ZOLOFT [Suspect]
     Indication: DEPRESSION
     Dosage: 50 MG (50 MG, 1 IN1 D), ORAL
     Route: 048
     Dates: start: 20031001, end: 20050801
  4. VITAMIN B12 FOR INJECTION (CYANOCOBALAMIN) [Concomitant]
  5. EVISTA [Concomitant]
  6. DILTIAZEM [Concomitant]
  7. ACETYLSALICYLIC ACID SRT [Concomitant]

REACTIONS (4)
  - ASCITES [None]
  - CHOLECYSTITIS [None]
  - DEPRESSION [None]
  - OVARIAN CANCER [None]
